FAERS Safety Report 10078786 (Version 1)
Quarter: 2014Q2

REPORT INFORMATION
  Report Type: Spontaneous
  Country: US (occurrence: US)
  Receive Date: 20140415
  Receipt Date: 20140415
  Transmission Date: 20141212
  Serious: No
  Sender: FDA-Public Use
  Company Number: US-BAYER-2014-055386

PATIENT
  Age: 21 Year
  Sex: Female
  Weight: 86.17 kg

DRUGS (1)
  1. ALEVE TABLET [Suspect]
     Indication: ANALGESIC THERAPY
     Dosage: 2 DF, QD
     Dates: start: 20140407

REACTIONS (1)
  - Drug ineffective [None]
